FAERS Safety Report 9751139 (Version 1)
Quarter: 2013Q4

REPORT INFORMATION
  Report Type: Spontaneous
  Country: US (occurrence: US)
  Receive Date: 20131212
  Receipt Date: 20131212
  Transmission Date: 20140711
  Serious: Yes (Other)
  Sender: FDA-Public Use
  Company Number: US-ABBVIE-13P-163-1177861-00

PATIENT
  Sex: Female
  Weight: 68.1 kg

DRUGS (3)
  1. SYNTHROID [Suspect]
     Indication: THYROIDECTOMY
     Route: 048
  2. SYNTHROID [Suspect]
     Route: 048
  3. CALCIUM [Concomitant]
     Indication: PRODUCT USED FOR UNKNOWN INDICATION

REACTIONS (3)
  - Tri-iodothyronine abnormal [Unknown]
  - Asthenia [Unknown]
  - Feeling abnormal [Unknown]
